FAERS Safety Report 9747124 (Version 10)
Quarter: 2014Q3

REPORT INFORMATION
  Report Type: Spontaneous
  Country: US (occurrence: US)
  Receive Date: 20131211
  Receipt Date: 20140702
  Transmission Date: 20150326
  Serious: No
  Sender: FDA-Public Use
  Company Number: US-009507513-1311USA011982

PATIENT
  Sex: Male

DRUGS (7)
  1. VICTRELIS [Suspect]
     Active Substance: BOCEPREVIR
     Indication: CHRONIC HEPATITIS C
     Dosage: UNK
     Route: 048
     Dates: start: 20130915
  2. IBUPROFEN. [Concomitant]
     Active Substance: IBUPROFEN
     Indication: HEADACHE
  3. PEGASYS [Suspect]
     Active Substance: PEGINTERFERON ALFA-2A
     Indication: CHRONIC HEPATITIS C
     Dosage: 180 MICROGRAM, QW
     Route: 058
     Dates: start: 20130915
  4. ALBUTEROL. [Concomitant]
     Active Substance: ALBUTEROL
     Indication: CHRONIC OBSTRUCTIVE PULMONARY DISEASE
  5. PEGASYS [Suspect]
     Active Substance: PEGINTERFERON ALFA-2A
     Dosage: 135 MICROGRAM, QW
     Route: 058
     Dates: end: 20140330
  6. RIBASPHERE [Suspect]
     Active Substance: RIBAVIRIN
     Indication: CHRONIC HEPATITIS C
     Dosage: DIVIDED DOSES (1000 MG, 2 IN 1 D)
     Route: 065
     Dates: start: 20130915
  7. ASPIRIN. [Concomitant]
     Active Substance: ASPIRIN

REACTIONS (30)
  - Eating disorder [Unknown]
  - Dyspnoea [Unknown]
  - Red blood cell count decreased [Recovering/Resolving]
  - Gastric haemorrhage [Unknown]
  - White blood cell count decreased [Unknown]
  - Asthenia [Not Recovered/Not Resolved]
  - Platelet count decreased [Unknown]
  - Diarrhoea [Unknown]
  - Crying [Unknown]
  - Vomiting [Unknown]
  - Anaemia [Unknown]
  - Chills [Not Recovered/Not Resolved]
  - Kidney hypermobility [Unknown]
  - Feeling abnormal [Unknown]
  - Slow speech [Unknown]
  - Hepatomegaly [Unknown]
  - Faeces discoloured [Unknown]
  - Haemoglobin decreased [Recovering/Resolving]
  - Irritability [Unknown]
  - Anger [Unknown]
  - Vomiting [Unknown]
  - Dysgeusia [Unknown]
  - Chest pain [Not Recovered/Not Resolved]
  - Depression [Unknown]
  - Nausea [Unknown]
  - Tremor [Unknown]
  - Headache [Not Recovered/Not Resolved]
  - Haemorrhage [Unknown]
  - Abdominal pain upper [Unknown]
  - Malaise [Unknown]

NARRATIVE: CASE EVENT DATE: 2013
